FAERS Safety Report 12776099 (Version 1)
Quarter: 2016Q3

REPORT INFORMATION
  Report Type: Spontaneous
  Country: IT (occurrence: IT)
  Receive Date: 20160923
  Receipt Date: 20160923
  Transmission Date: 20161109
  Serious: Yes (Disabling)
  Sender: FDA-Public Use
  Company Number: PHHY2016IT128846

PATIENT
  Age: 85 Year
  Sex: Female

DRUGS (1)
  1. TASIGNA [Suspect]
     Active Substance: NILOTINIB
     Indication: CHRONIC MYELOID LEUKAEMIA
     Dosage: 400 MG, QD
     Route: 048
     Dates: start: 20100101, end: 20151215

REACTIONS (4)
  - Impaired healing [Recovered/Resolved with Sequelae]
  - Traumatic ulcer [Recovered/Resolved with Sequelae]
  - Acute myocardial infarction [Recovered/Resolved with Sequelae]
  - Angiopathy [Recovered/Resolved with Sequelae]

NARRATIVE: CASE EVENT DATE: 20151215
